FAERS Safety Report 15386088 (Version 1)
Quarter: 2018Q3

REPORT INFORMATION
  Report Type: Spontaneous
  Country: US (occurrence: US)
  Receive Date: 20180907
  Receipt Date: 20180907
  Transmission Date: 20181010
  Serious: Yes (Other)
  Sender: FDA-Public Use
  Company Number: None

PATIENT
  Age: 56 Year
  Sex: Female
  Weight: 62.6 kg

DRUGS (1)
  1. CREST 3D WHITE WHITESTRIPS DENTAL WHITENING KIT, VERSION UNKNOWN (HYDROGEN PEROXIDE 5.3?14%) STRIP [Suspect]
     Active Substance: HYDROGEN PEROXIDE
     Indication: DENTAL COSMETIC PROCEDURE
     Dosage: ?          OTHER DOSE:W/STRIP ON T/TEETH;OTHER ROUTE:INTRA?ORAL?
     Dates: start: 2001, end: 2015

REACTIONS (5)
  - Gingival recession [None]
  - Periodontal disease [None]
  - Tooth loss [None]
  - Loose tooth [None]
  - Bone loss [None]

NARRATIVE: CASE EVENT DATE: 2014
